FAERS Safety Report 12844623 (Version 2)
Quarter: 2016Q4

REPORT INFORMATION
  Report Type: Spontaneous
  Country: US (occurrence: US)
  Receive Date: 20161013
  Receipt Date: 20161115
  Transmission Date: 20170207
  Serious: No
  Sender: FDA-Public Use
  Company Number: US-PFIZER INC-2016473786

PATIENT
  Age: 76 Year
  Sex: Female
  Weight: 49 kg

DRUGS (1)
  1. ADVIL [Suspect]
     Active Substance: IBUPROFEN
     Indication: MUSCULOSKELETAL CHEST PAIN
     Dosage: 2 DF, SINGLE
     Dates: start: 20161009, end: 20161009

REACTIONS (3)
  - Drug ineffective [Unknown]
  - Dizziness [Recovered/Resolved]
  - Feeling abnormal [Recovered/Resolved]

NARRATIVE: CASE EVENT DATE: 20161009
